FAERS Safety Report 24992837 (Version 1)
Quarter: 2025Q1

REPORT INFORMATION
  Report Type: Spontaneous
  Country: NO (occurrence: NO)
  Receive Date: 20250221
  Receipt Date: 20250221
  Transmission Date: 20250409
  Serious: Yes (Hospitalization, Other)
  Sender: CELLTRION
  Company Number: None

PATIENT

DRUGS (6)
  1. YUFLYMA [Suspect]
     Active Substance: ADALIMUMAB-AATY
     Indication: Rheumatoid arthritis
     Dosage: 40 MG, EVERY 14 DAYS, 1 INJECTION (40 MG) EVERY 14 DAYS. LAST INJECTION ON 30/JUL/2024.
     Route: 058
     Dates: start: 20200101, end: 20240801
  2. ALENDRONATE SODIUM [Concomitant]
     Active Substance: ALENDRONATE SODIUM
     Dosage: 70 MG, EVERY 1 WEEK (1 TABLET EVERY MONDAY)
  3. TESTOSTERONE [Concomitant]
     Active Substance: TESTOSTERONE
  4. METEX [Concomitant]
     Dosage: 15 MG, EVERY 1 WEEK (1 INJECTION (15 MG) EVERY TUESDAY MORNING)
  5. CALCIUM CARBONATE\CHOLECALCIFEROL [Concomitant]
     Active Substance: CALCIUM CARBONATE\CHOLECALCIFEROL
  6. FOLSYRE ORIFARM [Concomitant]

REACTIONS (11)
  - Neck pain [Recovered/Resolved with Sequelae]
  - Aura [Recovered/Resolved with Sequelae]
  - Gait disturbance [Recovered/Resolved with Sequelae]
  - Dysarthria [Recovered/Resolved with Sequelae]
  - Vertebral artery thrombosis [Recovered/Resolved with Sequelae]
  - Cerebellar infarction [Recovered/Resolved with Sequelae]
  - Cerebrovascular accident [Recovered/Resolved with Sequelae]
  - Headache [Recovered/Resolved with Sequelae]
  - Headache [Recovered/Resolved with Sequelae]
  - Nausea [Recovered/Resolved with Sequelae]
  - Vomiting [Recovered/Resolved with Sequelae]

NARRATIVE: CASE EVENT DATE: 20240730
